FAERS Safety Report 20582718 (Version 11)
Quarter: 2024Q1

REPORT INFORMATION
  Report Type: Spontaneous
  Country: US (occurrence: US)
  Receive Date: 20220311
  Receipt Date: 20240315
  Transmission Date: 20240410
  Serious: No
  Sender: FDA-Public Use
  Company Number: US-PFIZER INC-2020387583

PATIENT
  Age: 65 Year
  Sex: Female
  Weight: 63 kg

DRUGS (3)
  1. PREMARIN [Suspect]
     Active Substance: ESTROGENS, CONJUGATED
     Indication: Atrophic vulvovaginitis
     Dosage: 3 DAYS A WEEK
     Route: 067
  2. PREMARIN [Suspect]
     Active Substance: ESTROGENS, CONJUGATED
     Dosage: APPLY 0.5GM TID
  3. PREMARIN [Suspect]
     Active Substance: ESTROGENS, CONJUGATED
     Dosage: 0.625 MG

REACTIONS (4)
  - Off label use [Unknown]
  - Product prescribing error [Unknown]
  - Pharyngeal disorder [Unknown]
  - Memory impairment [Unknown]
